FAERS Safety Report 6592973-6 (Version None)
Quarter: 2010Q1

REPORT INFORMATION
  Report Type: 
  Country: None (occurrence: None)
  Receive Date: 20100222
  Receipt Date: 20100215
  Transmission Date: 20100710
  Serious: Yes (Hospitalization)
  Sender: FDA-Public Use
  Company Number: FR-BRISTOL-MYERS SQUIBB COMPANY-14944417

PATIENT
  Age: 80 Year
  Sex: Male
  Weight: 80 kg

DRUGS (3)
  1. COUMADIN [Suspect]
     Dosage: INC TO 5MG/D. 2 TABS/DAY ON EVEN DATES IN EVENING SINCE 08-FEB-2010.
     Dates: start: 20100112, end: 20100208
  2. ALLOPURINOL [Suspect]
     Dates: end: 20100111
  3. PREVISCAN [Suspect]
     Dosage: 1 DF = 1/2 TABLET.
     Dates: start: 20090801, end: 20100111

REACTIONS (1)
  - DERMATITIS EXFOLIATIVE [None]
